FAERS Safety Report 18960571 (Version 1)
Quarter: 2021Q1

REPORT INFORMATION
  Report Type: Spontaneous
  Country: CN (occurrence: CN)
  Receive Date: 20210302
  Receipt Date: 20210302
  Transmission Date: 20210420
  Serious: Yes (Other)
  Sender: FDA-Public Use
  Company Number: CN-PFIZER INC-2021200892

PATIENT
  Age: 69 Year
  Sex: Female
  Weight: 63 kg

DRUGS (1)
  1. AZITHROMYCIN ANHYDROUS. [Suspect]
     Active Substance: AZITHROMYCIN ANHYDROUS
     Indication: ANTI-INFECTIVE THERAPY
     Dosage: 0.5 G, 1X/DAY
     Route: 041
     Dates: start: 20210111, end: 20210111

REACTIONS (4)
  - Nausea [Recovering/Resolving]
  - Hypertension [Recovering/Resolving]
  - Chest discomfort [Recovering/Resolving]
  - Epigastric discomfort [Recovering/Resolving]

NARRATIVE: CASE EVENT DATE: 20210111
